FAERS Safety Report 8158581-0 (Version None)
Quarter: 2012Q1

REPORT INFORMATION
  Report Type: 
  Country: None (occurrence: None)
  Receive Date: 20120223
  Receipt Date: 20120215
  Transmission Date: 20120608
  Serious: Yes (Disabling)
  Sender: FDA-Public Use
  Company Number: CA-BAYER-2012-015263

PATIENT
  Age: 19 Year
  Sex: Female
  Weight: 54.422 kg

DRUGS (1)
  1. YASMIN [Suspect]
     Dosage: 1 DF, QD
     Route: 048

REACTIONS (1)
  - MAJOR DEPRESSION [None]
